FAERS Safety Report 24560015 (Version 2)
Quarter: 2025Q2

REPORT INFORMATION
  Report Type: Spontaneous
  Country: DE (occurrence: DE)
  Receive Date: 20241029
  Receipt Date: 20250407
  Transmission Date: 20250717
  Serious: Yes (Other)
  Sender: AMGEN
  Company Number: DE-DCGMA-24204045

PATIENT
  Age: 76 Year
  Sex: Female
  Weight: 95 kg

DRUGS (3)
  1. EVENITY [Suspect]
     Active Substance: ROMOSOZUMAB-AQQG
     Indication: Osteoporosis
     Route: 058
     Dates: start: 20240707
  2. PREDNISOLONE [Concomitant]
     Active Substance: PREDNISOLONE
     Indication: Autoimmune disorder
     Dosage: 5 MILLIGRAM, ONCE DAILY (QD)
     Route: 048
  3. TREMFYA [Concomitant]
     Active Substance: GUSELKUMAB
     Indication: Psoriasis
     Dosage: 100 MILLIGRAM, EV 2 MONTHS
     Route: 058

REACTIONS (3)
  - Tooth loss [Unknown]
  - Pain in jaw [Unknown]
  - Osteonecrosis of jaw [Unknown]

NARRATIVE: CASE EVENT DATE: 20240714
